FAERS Safety Report 25606358 (Version 1)
Quarter: 2025Q3

REPORT INFORMATION
  Report Type: Spontaneous
  Country: US (occurrence: US)
  Receive Date: 20250725
  Receipt Date: 20250725
  Transmission Date: 20251020
  Serious: No
  Sender: DAIICHI
  Company Number: US-DSJP-DS-2025-155023-US

PATIENT
  Sex: Female

DRUGS (2)
  1. SAVAYSA [Suspect]
     Active Substance: EDOXABAN TOSYLATE
     Indication: Thrombosis
     Route: 065
  2. SAVAYSA [Suspect]
     Active Substance: EDOXABAN TOSYLATE
     Route: 065
     Dates: start: 2025

REACTIONS (2)
  - Off label use [Unknown]
  - No adverse event [Unknown]
